FAERS Safety Report 7132320-4 (Version None)
Quarter: 2010Q4

REPORT INFORMATION
  Report Type: 
  Country: None (occurrence: None)
  Receive Date: 20101129
  Receipt Date: 20101129
  Transmission Date: 20110411
  Serious: Yes (Hospitalization)
  Sender: FDA-Public Use
  Company Number: None

PATIENT
  Sex: Female
  Weight: 103.8737 kg

DRUGS (2)
  1. SAVELLA [Suspect]
     Indication: DEPRESSION
     Dosage: DAY 1 - 1 12.5MG DAY 2 1 12.5 AM 1 PM DAY 3 1 25MG AM DAY 8 - 28 1 50 MG AM 1 50 PM
     Dates: start: 20100721
  2. SAVELLA [Suspect]
     Indication: PAIN
     Dosage: DAY 1 - 1 12.5MG DAY 2 1 12.5 AM 1 PM DAY 3 1 25MG AM DAY 8 - 28 1 50 MG AM 1 50 PM
     Dates: start: 20100721

REACTIONS (3)
  - ALCOHOL POISONING [None]
  - DRUG TOXICITY [None]
  - SUICIDE ATTEMPT [None]
